FAERS Safety Report 4457330-7 (Version None)
Quarter: 2004Q3

REPORT INFORMATION
  Report Type: 
  Country: None (occurrence: None)
  Receive Date: 20040922
  Receipt Date: 20040913
  Transmission Date: 20050211
  Serious: Yes (Death, Life-Threatening)
  Sender: FDA-Public Use
  Company Number: US-JNJFOC-20040903659

PATIENT
  Sex: Female

DRUGS (2)
  1. EXTRA STRENGTH TYLENOL [Suspect]
     Indication: SUICIDE ATTEMPT
     Dosage: ORAL
     Route: 048
  2. COCAINE (COCAINE) [Suspect]
     Indication: SUICIDE ATTEMPT
     Dosage: NASAL
     Route: 045

REACTIONS (4)
  - CARDIAC ARREST [None]
  - DRUG ABUSER [None]
  - ELECTROCARDIOGRAM QRS COMPLEX PROLONGED [None]
  - SUICIDE ATTEMPT [None]
